FAERS Safety Report 7049514-9 (Version None)
Quarter: 2010Q4

REPORT INFORMATION
  Report Type: 
  Country: None (occurrence: None)
  Receive Date: 20101013
  Receipt Date: 20101005
  Transmission Date: 20110411
  Serious: Yes (Hospitalization)
  Sender: FDA-Public Use
  Company Number: 2010US002179

PATIENT
  Age: 39 Year
  Sex: Male
  Weight: 84 kg

DRUGS (1)
  1. PROGRAF [Suspect]
     Indication: LIVER TRANSPLANT
     Dosage: 0.5 MG, BID, ORAL; 4 MG, BID, ORAL
     Route: 048
     Dates: start: 20100503, end: 20100601

REACTIONS (2)
  - HOSPITALISATION [None]
  - NEUROTOXICITY [None]
